FAERS Safety Report 9364001 (Version 3)
Quarter: 2014Q3

REPORT INFORMATION
  Report Type: Spontaneous
  Country: US (occurrence: None)
  Receive Date: 20130619
  Receipt Date: 20140715
  Transmission Date: 20150326
  Serious: Yes (Death)
  Sender: FDA-Public Use
  Company Number: 2013SGN00356

PATIENT
  Age: 70 Year
  Sex: Male
  Weight: 88.9 kg

DRUGS (6)
  1. BRENTUXIMAB VEDOTIN/PLACEBO (BRENTUXIMAB VEDOTIN/PLACEDO) INJECTION [Suspect]
     Active Substance: BRENTUXIMAB VEDOTIN
     Indication: HODGKIN^S DISEASE
     Dosage: 1.8 MG/KG, Q21D, INTRAVENOUS
     Route: 042
     Dates: start: 20110824, end: 20120627
  2. MAGNESIUM OXIDE (MAGNESIUM OXIDE) [Concomitant]
     Active Substance: MAGNESIUM OXIDE
  3. LEVOTHYROXINE (LEVOTHYROXINE SODIUM) [Concomitant]
  4. ASPIRIN (ASPRIN) [Concomitant]
  5. POTASSIUM CHLORIDE (POTASSIUM CHLORIDE) [Concomitant]
     Active Substance: POTASSIUM CHLORIDE
  6. TRAVOPROST (TRAVOPROST) [Concomitant]

REACTIONS (9)
  - Oral pain [None]
  - Neuropathy peripheral [None]
  - Myelodysplastic syndrome [None]
  - Contusion [None]
  - Vitamin B12 deficiency [None]
  - Bone marrow failure [None]
  - Ataxia [None]
  - Fatigue [None]
  - Constipation [None]

NARRATIVE: CASE EVENT DATE: 20130522
